FAERS Safety Report 6464113-5 (Version None)
Quarter: 2009Q4

REPORT INFORMATION
  Report Type: 
  Country: None (occurrence: None)
  Receive Date: 20091119
  Receipt Date: 20090901
  Transmission Date: 20100525
  Serious: Yes (Hospitalization)
  Sender: FDA-Public Use
  Company Number: 2009RR-26537

PATIENT
  Age: 56 Year
  Sex: Male

DRUGS (9)
  1. CLOPIDOGREL [Suspect]
     Dosage: 75 MG, QD
  2. PRAVASTATIN [Suspect]
     Dosage: 80 MG, QD
  3. UNKNOWN [Concomitant]
  4. ATAZANAVIR [Concomitant]
  5. RITONAVIR [Concomitant]
  6. COUMADIN [Concomitant]
  7. ABACAVIR [Concomitant]
  8. LAMIVUDINE [Concomitant]
  9. TRUVADA [Suspect]
     Indication: ANTIRETROVIRAL THERAPY
     Dosage: 500 MG, QD

REACTIONS (1)
  - RHABDOMYOLYSIS [None]
